FAERS Safety Report 18911597 (Version 5)
Quarter: 2021Q2

REPORT INFORMATION
  Report Type: Spontaneous
  Country: JP (occurrence: JP)
  Receive Date: 20210218
  Receipt Date: 20210521
  Transmission Date: 20210717
  Serious: Yes (Death, Hospitalization, Other)
  Sender: FDA-Public Use
  Company Number: JP-009507513-2102JPN001524J

PATIENT
  Age: 48 Year
  Sex: Male
  Weight: 63 kg

DRUGS (3)
  1. KEYTRUDA [Suspect]
     Active Substance: PEMBROLIZUMAB
     Indication: RENAL CELL CARCINOMA STAGE IV
     Dosage: 200 MILLIGRAM, Q3W
     Route: 041
     Dates: start: 20200707, end: 20201222
  2. INLYTA [Suspect]
     Active Substance: AXITINIB
     Indication: RENAL CELL CARCINOMA STAGE IV
     Dosage: 10 MILLIGRAM, UNK
     Route: 048
     Dates: start: 20200707, end: 20210111
  3. CABOZANTINIB S?MALATE [Suspect]
     Active Substance: CABOZANTINIB S-MALATE
     Indication: MALIGNANT NEOPLASM PROGRESSION
     Dosage: 40 MILLIGRAM, UNK
     Route: 048
     Dates: start: 20210115, end: 20210202

REACTIONS (4)
  - Tumour associated fever [Unknown]
  - Drug-induced liver injury [Fatal]
  - Malignant neoplasm progression [Unknown]
  - Malaise [Unknown]

NARRATIVE: CASE EVENT DATE: 2020
